FAERS Safety Report 18288040 (Version 1)
Quarter: 2020Q3

REPORT INFORMATION
  Report Type: Spontaneous
  Country: NO (occurrence: NO)
  Receive Date: 20200921
  Receipt Date: 20200921
  Transmission Date: 20201103
  Serious: Yes (Life-Threatening, Hospitalization)
  Sender: FDA-Public Use
  Company Number: NO-ACCORD-201363

PATIENT
  Age: 76 Year
  Sex: Male

DRUGS (8)
  1. METOPROLOL SANDOZ [Concomitant]
     Active Substance: METOPROLOL
     Indication: CARDIAC FAILURE
     Dosage: 100 MG, ONCE DAILY, STRENGTH: 100 MG, C07AB02 ? METOPROLOL
     Route: 048
  2. WARFARIN ORION [Concomitant]
     Active Substance: WARFARIN
     Indication: ATRIAL FIBRILLATION
     Dosage: ACCORDING TO INR, STRENGTH: 2.5 MG, B01AA03 ? WARFARIN
     Route: 048
  3. ATORVASTATIN XIROMED [Concomitant]
     Indication: MYOCARDIAL INFARCTION
     Dosage: 40 MG, ONCE DAILY, STRENGTH: 40 MG, C10AA05 ? ATORVASTATIN
     Route: 048
  4. ZOPICLONE ACTAVIS [Concomitant]
     Active Substance: ZOPICLONE
     Indication: INSOMNIA
     Dosage: 7.5 MG, ONCE DAILY, N05CF01 ? ZOPICLONE, STRENGTH: 7.5 MG
     Route: 048
  5. ENALAPRIL KRKA [Suspect]
     Active Substance: ENALAPRIL MALEATE
     Indication: CARDIAC FAILURE
     Dosage: 10 MG, ONCE DAILY, C09AA02 ? ENALAPRIL, STRENGTH: 10 MG
     Route: 048
  6. PLAVIX [Concomitant]
     Active Substance: CLOPIDOGREL BISULFATE
     Indication: STENT PLACEMENT
     Dosage: 75 MG, ONCE DAILY, B01AC04 ? CLOPIDOGREL, STRENGTH: 75 MG
     Route: 048
  7. FUROSEMIDE. [Suspect]
     Active Substance: FUROSEMIDE
     Indication: CARDIAC FAILURE
     Dosage: ONCE DAILY, STRENGTH: 40 MG, C03CA01 ? FUROSEMID
     Route: 048
  8. PANTOPRAZOL PENSA [Concomitant]
     Active Substance: PANTOPRAZOLE SODIUM
     Indication: OESOPHAGEAL DISORDER
     Dosage: 40 MG, ONCE DAILY, STRENGTH: 20 MG, A02BC02 ? PANTOPRAZOL
     Route: 048

REACTIONS (1)
  - Renal failure [Recovering/Resolving]

NARRATIVE: CASE EVENT DATE: 20200831
